FAERS Safety Report 25943561 (Version 2)
Quarter: 2025Q4

REPORT INFORMATION
  Report Type: Spontaneous
  Country: JP (occurrence: JP)
  Receive Date: 20251021
  Receipt Date: 20251128
  Transmission Date: 20260117
  Serious: Yes (Hospitalization, Other)
  Sender: AMGEN
  Company Number: JP-AMGEN-JPNSP2025205837

PATIENT
  Age: 7 Decade
  Sex: Male

DRUGS (2)
  1. BEVACIZUMAB [Suspect]
     Active Substance: BEVACIZUMAB
     Indication: Hepatocellular carcinoma
     Dosage: DRIP INFUSION
     Route: 040
  2. ATEZOLIZUMAB [Concomitant]
     Active Substance: ATEZOLIZUMAB
     Indication: Hepatocellular carcinoma
     Dosage: A TOTAL OF 5 COURSES

REACTIONS (4)
  - Vascular pseudoaneurysm [Unknown]
  - Acquired haemophilia [Unknown]
  - Drug effective for unapproved indication [Unknown]
  - Off label use [Unknown]
